FAERS Safety Report 21307714 (Version 2)
Quarter: 2022Q3

REPORT INFORMATION
  Report Type: Spontaneous
  Country: IN (occurrence: IN)
  Receive Date: 20220908
  Receipt Date: 20220929
  Transmission Date: 20221027
  Serious: Yes (Hospitalization, Other)
  Sender: FDA-Public Use
  Company Number: IN-PFIZER INC-PV202200058115

PATIENT
  Age: 65 Year
  Sex: Female
  Weight: 62 kg

DRUGS (5)
  1. PALBOCICLIB [Suspect]
     Active Substance: PALBOCICLIB
     Dosage: 125 MG, 1X/DAY
     Route: 048
     Dates: start: 202201, end: 202207
  2. PALBOCICLIB [Suspect]
     Active Substance: PALBOCICLIB
     Dosage: 100 MG, 3WKS
  3. FULVESTRANT [Concomitant]
     Active Substance: FULVESTRANT
     Dosage: UNK
  4. AMLODIPINE BESYLATE [Concomitant]
     Active Substance: AMLODIPINE BESYLATE
     Dosage: 5 MG, 2X/DAY (1-0-1)
  5. TENGLYN M [Concomitant]
     Dosage: UNK, 2X/DAY (20/500, 1-0-1)

REACTIONS (6)
  - Soft tissue sarcoma [Unknown]
  - Neoplasm progression [Unknown]
  - Blood glucose abnormal [Unknown]
  - Blood creatinine abnormal [Unknown]
  - Glycosylated haemoglobin increased [Unknown]
  - Blood urea increased [Unknown]
